FAERS Safety Report 21060996 (Version 4)
Quarter: 2022Q4

REPORT INFORMATION
  Report Type: Spontaneous
  Country: US (occurrence: US)
  Receive Date: 20220709
  Receipt Date: 20221027
  Transmission Date: 20230112
  Serious: No
  Sender: FDA-Public Use
  Company Number: US-BRISTOL-MYERS SQUIBB COMPANY-2022-069952

PATIENT
  Age: 71 Year
  Sex: Female

DRUGS (3)
  1. REVLIMID [Suspect]
     Active Substance: LENALIDOMIDE
     Indication: Plasma cell myeloma
     Route: 048
  2. REVLIMID [Suspect]
     Active Substance: LENALIDOMIDE
     Dosage: FREQ - AKE 1 CAPSULE BY MOUTH DAILY ON DAYS 1-21 OF EACH CYCLE. TAKE WHOLE WITH WATER AT THE SAME TI
     Route: 048
  3. REVLIMID [Suspect]
     Active Substance: LENALIDOMIDE
     Dosage: FREQ - TAKE 1 CAPSULE BY MOUTH DAILY ON DAYS 1-21 OF EACH CYCLE. TAKE WHOLE WITH WATER AT THE SAME T
     Route: 048
     Dates: start: 20211216

REACTIONS (5)
  - Constipation [Unknown]
  - Tinnitus [Unknown]
  - Pollakiuria [Unknown]
  - Blood pressure decreased [Unknown]
  - Bowel movement irregularity [Not Recovered/Not Resolved]
